FAERS Safety Report 4721786-2 (Version None)
Quarter: 2005Q3

REPORT INFORMATION
  Report Type: 
  Country: None (occurrence: None)
  Receive Date: 20050721
  Receipt Date: 20050414
  Transmission Date: 20060218
  Serious: Yes (Hospitalization)
  Sender: FDA-Public Use
  Company Number: US-BRISTOL-MYERS SQUIBB COMPANY-12933594

PATIENT
  Age: 67 Year
  Sex: Female

DRUGS (15)
  1. COUMADIN [Suspect]
     Dosage: INTERRUPTED 22-FEB-2005; RE-STARTED POST HOSPITAL DISCHARGE
     Dates: start: 20050201
  2. BETASERON [Suspect]
     Indication: MULTIPLE SCLEROSIS
     Dosage: INJECTION 250 MICROGRAM
     Route: 058
     Dates: start: 19930101
  3. ADVAIR DISKUS 100/50 [Concomitant]
     Indication: LUNG DISORDER
  4. ALBUTEROL [Concomitant]
     Route: 055
  5. ARANESP [Concomitant]
     Indication: RENAL DISORDER
  6. CARDIZEM [Concomitant]
     Indication: HYPERTENSION
  7. COREG [Concomitant]
     Indication: CARDIAC DISORDER
  8. GLIPIZIDE [Concomitant]
     Indication: DIABETES MELLITUS NON-INSULIN-DEPENDENT
  9. LASIX [Concomitant]
  10. LISINOPRIL [Concomitant]
     Indication: HYPERTENSION
  11. REGLAN [Concomitant]
     Indication: GASTRIC DISORDER
  12. STERI-NEB SALAMOL [Concomitant]
     Indication: LUNG DISORDER
     Route: 055
  13. XOPENEX [Concomitant]
     Indication: LUNG DISORDER
  14. ZOCOR [Concomitant]
     Indication: BLOOD CHOLESTEROL INCREASED
  15. ZOLOFT [Concomitant]
     Indication: DEPRESSION

REACTIONS (1)
  - EPISTAXIS [None]
